FAERS Safety Report 12598661 (Version 6)
Quarter: 2017Q4

REPORT INFORMATION
  Report Type: Report from Study
  Country: JP (occurrence: JP)
  Receive Date: 20160727
  Receipt Date: 20171215
  Transmission Date: 20180320
  Serious: Yes (Death, Hospitalization)
  Sender: FDA-Public Use
  Company Number: JP-INCYTE CORPORATION-2016IN002541

PATIENT

DRUGS (6)
  1. JAKAVI [Suspect]
     Active Substance: RUXOLITINIB
     Indication: PRIMARY MYELOFIBROSIS
     Dosage: 5 MG, BID
     Route: 048
     Dates: start: 20150723, end: 20150819
  2. NESP [Concomitant]
     Active Substance: DARBEPOETIN ALFA
     Dosage: 8.7 IU, UNK
  3. NESP [Concomitant]
     Active Substance: DARBEPOETIN ALFA
     Dosage: 60 UG, UNK
  4. JAKAVI [Suspect]
     Active Substance: RUXOLITINIB
     Dosage: 10 MG, BID
     Route: 048
     Dates: start: 20150819, end: 20160426
  5. NESP [Concomitant]
     Active Substance: DARBEPOETIN ALFA
     Indication: HAEMATOPOIETIC STEM CELL MOBILISATION
     Dosage: 60 IU, UNK
     Route: 065
  6. NESP [Concomitant]
     Active Substance: DARBEPOETIN ALFA
     Dosage: 60 UG, UNK

REACTIONS (2)
  - Red blood cell count decreased [Not Recovered/Not Resolved]
  - Lymphadenitis [Fatal]

NARRATIVE: CASE EVENT DATE: 20151029
